FAERS Safety Report 25290442 (Version 1)
Quarter: 2025Q2

REPORT INFORMATION
  Report Type: Other
  Country: FR (occurrence: FR)
  Receive Date: 20250510
  Receipt Date: 20250510
  Transmission Date: 20250717
  Serious: Yes (Death)
  Sender: ZYDUS PHARM
  Company Number: None

PATIENT

DRUGS (3)
  1. GABAPENTIN [Suspect]
     Active Substance: GABAPENTIN
     Indication: Aggression
     Route: 048
     Dates: start: 20241106, end: 20250119
  2. OLANZAPINE [Suspect]
     Active Substance: OLANZAPINE
     Indication: Aggression
     Route: 048
     Dates: start: 20250110
  3. LOXAPINE [Suspect]
     Active Substance: LOXAPINE
     Indication: Aggression
     Route: 048
     Dates: start: 20250112

REACTIONS (1)
  - Death [Fatal]

NARRATIVE: CASE EVENT DATE: 20250119
